FAERS Safety Report 7495201-2 (Version None)
Quarter: 2011Q2

REPORT INFORMATION
  Report Type: 
  Country: None (occurrence: None)
  Receive Date: 20110520
  Receipt Date: 20110511
  Transmission Date: 20111010
  Serious: Yes (Hospitalization, Other)
  Sender: FDA-Public Use
  Company Number: US-ASTRAZENECA-2011SE28521

PATIENT
  Age: 44 Year
  Sex: Male

DRUGS (13)
  1. PROAIR HFA [Concomitant]
     Dosage: TWO INHALATIONS FOUR HOURS APART AS NEEDED
  2. LIPITOR [Concomitant]
  3. ONDANSERTRON HYDROCHLORIDE [Concomitant]
     Indication: VOMITING
     Dosage: 4 MG - 1 TABLET
  4. HUMULIN R [Concomitant]
     Dosage: U500 - 18 UNITS BEFORE BREAKFAST, LUNCH IF NEEDED AND BEFORE DINNER
  5. SEROQUEL [Suspect]
     Indication: POST-TRAUMATIC STRESS DISORDER
     Route: 048
  6. ASPIRIN [Concomitant]
     Indication: CARDIAC DISORDER
     Dosage: ONE REGULAR STRENGTH TABLET EACH MORNING FOR HEART
  7. CITALOPRAM HYDROBROMIDE [Concomitant]
     Indication: POST-TRAUMATIC STRESS DISORDER
  8. PREVACID [Concomitant]
     Indication: GASTROOESOPHAGEAL REFLUX DISEASE
  9. CITALOPRAM HYDROBROMIDE [Concomitant]
     Indication: DEPRESSION
  10. METFORMIN HCL [Concomitant]
     Indication: DIABETES MELLITUS
     Dosage: 1000 MG 2X (AM/PM)
  11. COZAAR [Concomitant]
     Indication: BLOOD PRESSURE
  12. ONDANSERTRON HYDROCHLORIDE [Concomitant]
     Indication: NAUSEA
     Dosage: 4 MG - 1 TABLET
  13. TRIAMTERENE AND HYDROCHLOROTHIAZIDE [Concomitant]
     Indication: BLOOD PRESSURE
     Dosage: 37.5/25 MG - ONE TABLET DAILY

REACTIONS (12)
  - ANGINA PECTORIS [None]
  - ENDOSCOPY [None]
  - MULTIPLE ALLERGIES [None]
  - BEZOAR [None]
  - CARDIAC DISORDER [None]
  - GASTRIC LAVAGE [None]
  - DRUG HYPERSENSITIVITY [None]
  - CORONARY ARTERIAL STENT INSERTION [None]
  - INTERVERTEBRAL DISC OPERATION [None]
  - ASTHMA [None]
  - TYPE 2 DIABETES MELLITUS [None]
  - MEDICAL DEVICE IMPLANTATION [None]
